FAERS Safety Report 17229753 (Version 1)
Quarter: 2020Q1

REPORT INFORMATION
  Report Type: Report from Study
  Country: IT (occurrence: IT)
  Receive Date: 20200103
  Receipt Date: 20200103
  Transmission Date: 20200409
  Serious: Yes (Other)
  Sender: FDA-Public Use
  Company Number: IT-KYOWAKIRIN-2019BKK020838

PATIENT

DRUGS (1)
  1. MOGAMULIZUMAB [Suspect]
     Active Substance: MOGAMULIZUMAB
     Indication: CUTANEOUS T-CELL LYMPHOMA
     Dosage: 1 MG/KG WEEKLY
     Route: 042
     Dates: start: 20190417, end: 20191227

REACTIONS (4)
  - Tremor [Not Recovered/Not Resolved]
  - Rash erythematous [Not Recovered/Not Resolved]
  - Deep vein thrombosis [Recovering/Resolving]
  - Conjunctivitis [Not Recovered/Not Resolved]

NARRATIVE: CASE EVENT DATE: 20191220
